FAERS Safety Report 9772941 (Version 3)
Quarter: 2014Q1

REPORT INFORMATION
  Report Type: Spontaneous
  Country: BR (occurrence: BR)
  Receive Date: 20131219
  Receipt Date: 20140324
  Transmission Date: 20141002
  Serious: Yes (Other)
  Sender: FDA-Public Use
  Company Number: BR-ABBVIE-10P-020-0675250-00

PATIENT
  Age: 75 Year
  Sex: Male
  Weight: 70 kg

DRUGS (4)
  1. DEPAKENE [Suspect]
     Indication: CONVULSION
     Dosage: 1500 MG; AT 6:00AM, AT 2:00PM AND AT 10:00PM
  2. DEPAKENE [Suspect]
     Dates: start: 2006
  3. HIDANTAL [Concomitant]
     Indication: CONVULSION
     Route: 048
  4. TEGRETOL [Concomitant]
     Indication: CONVULSION
     Dosage: 600 MG; TAKEN TOGETHER WITH DEPAKENE
     Route: 048
     Dates: start: 2012

REACTIONS (7)
  - Convulsion [Recovered/Resolved]
  - Incorrect dose administered [Unknown]
  - Convulsion [Recovered/Resolved]
  - Convulsion [Recovered/Resolved]
  - Parkinson^s disease [Not Recovered/Not Resolved]
  - Blood cholesterol increased [Not Recovered/Not Resolved]
  - Wrong technique in drug usage process [Unknown]
